FAERS Safety Report 5389865-7 (Version None)
Quarter: 2007Q3

REPORT INFORMATION
  Report Type: 
  Country: None (occurrence: None)
  Receive Date: 20070718
  Receipt Date: 20070711
  Transmission Date: 20080115
  Serious: Yes (Other)
  Sender: FDA-Public Use
  Company Number: PHBS2007NZ11851

PATIENT

DRUGS (1)
  1. CLOZARIL [Suspect]
     Dosage: 200 MG MANE, 400 MG NOCTE
     Route: 048

REACTIONS (2)
  - OPTIC ATROPHY [None]
  - VISUAL ACUITY REDUCED [None]
